FAERS Safety Report 16450918 (Version 3)
Quarter: 2019Q3

REPORT INFORMATION
  Report Type: Spontaneous
  Country: US (occurrence: US)
  Receive Date: 20190619
  Receipt Date: 20190703
  Transmission Date: 20191004
  Serious: Yes (Life-Threatening, Hospitalization, Other)
  Sender: FDA-Public Use
  Company Number: US-ALEMBIC PHARMACUETICALS LIMITED-2019SCAL000372

PATIENT

DRUGS (1)
  1. METOPROLOL TARTRATE. [Suspect]
     Active Substance: METOPROLOL TARTRATE
     Indication: ARRHYTHMIA
     Dosage: 25 MILLIGRAM, TABLET
     Route: 048
     Dates: start: 20190603, end: 20190604

REACTIONS (11)
  - Dizziness [Recovering/Resolving]
  - Amnesia [Recovering/Resolving]
  - Chest discomfort [Recovering/Resolving]
  - Pulse absent [Recovering/Resolving]
  - Loss of personal independence in daily activities [Recovering/Resolving]
  - Feeling hot [Recovering/Resolving]
  - Pain [Recovering/Resolving]
  - Abdominal discomfort [Recovering/Resolving]
  - Transient ischaemic attack [Recovering/Resolving]
  - Blindness [Recovering/Resolving]
  - Blood pressure decreased [Recovered/Resolved]

NARRATIVE: CASE EVENT DATE: 20190603
